FAERS Safety Report 6104557-4 (Version None)
Quarter: 2009Q1

REPORT INFORMATION
  Report Type: 
  Country: None (occurrence: None)
  Receive Date: 20090305
  Receipt Date: 20090304
  Transmission Date: 20090719
  Serious: Yes (Other)
  Sender: FDA-Public Use
  Company Number: US-WYE-H08374209

PATIENT
  Sex: Female
  Weight: 59.02 kg

DRUGS (19)
  1. RAPAMUNE [Suspect]
     Indication: LUNG TRANSPLANT
     Route: 048
     Dates: start: 20000101
  2. RAPAMUNE [Suspect]
     Indication: RENAL TRANSPLANT
  3. PREDNISONE [Concomitant]
     Indication: PROPHYLAXIS AGAINST TRANSPLANT REJECTION
  4. CLONIDINE [Concomitant]
     Indication: HYPERTENSION
  5. COREG [Concomitant]
     Indication: HYPERTENSION
     Dosage: 6.25 ^BID^ (UNITS NOT SPECIFIED)
  6. LISINOPRIL [Concomitant]
     Indication: HYPERTENSION
  7. BACTRIM DS [Concomitant]
     Indication: INFECTION PROPHYLAXIS
     Dosage: 1 TAB MON, WED, AND FRI
  8. VALCYTE [Concomitant]
     Indication: INFECTION PROPHYLAXIS
  9. LEVOXYL [Concomitant]
     Indication: HYPOTHYROIDISM
  10. LIPITOR [Concomitant]
     Indication: BLOOD CHOLESTEROL INCREASED
     Dosage: 10 MG (FREQUENCY UNSPECIFIED)
  11. PANCREASE [Concomitant]
     Indication: CYSTIC FIBROSIS
  12. ZYRTEC [Concomitant]
     Indication: HYPERSENSITIVITY
     Dosage: 10 MG (FREQUENCY UNSPECIFIED)
  13. ZOLOFT [Concomitant]
     Indication: DEPRESSION
  14. PRILOSEC [Concomitant]
  15. MIRALAX [Concomitant]
     Indication: SMALL INTESTINAL OBSTRUCTION
     Dosage: 0.5 CAPFUL DAILY
  16. LANTUS [Concomitant]
     Indication: DIABETES MELLITUS
     Dosage: 21 UNIT EVERY 1 DAY
  17. FOSAMAX [Concomitant]
  18. NASONEX [Concomitant]
     Indication: HYPERSENSITIVITY
     Dosage: ^2 PUFFS IN EACH NOSTRIL QD^
  19. PROGRAF [Suspect]
     Indication: PROPHYLAXIS AGAINST TRANSPLANT REJECTION

REACTIONS (2)
  - BLOOD CHOLESTEROL INCREASED [None]
  - RETINITIS PIGMENTOSA [None]
